FAERS Safety Report 20055022 (Version 1)
Quarter: 2021Q4

REPORT INFORMATION
  Report Type: Spontaneous
  Country: None (occurrence: A1)
  Receive Date: 20211110
  Receipt Date: 20211110
  Transmission Date: 20220303
  Serious: Yes (Hospitalization, Other)
  Sender: FDA-Public Use
  Company Number: A1-Avion Pharmaceuticals, LLC-2121707

PATIENT
  Age: 37 Year
  Sex: Male

DRUGS (3)
  1. GLOPERBA [Suspect]
     Active Substance: COLCHICINE
     Indication: Pericarditis
     Route: 065
  2. IBUPROFEN [Concomitant]
     Active Substance: IBUPROFEN
     Route: 065
  3. PROTONIX [Concomitant]
     Active Substance: PANTOPRAZOLE SODIUM
     Route: 065

REACTIONS (6)
  - Abdominal pain [Unknown]
  - Fatigue [Unknown]
  - Muscle spasms [Unknown]
  - Pyrexia [Unknown]
  - Asthenia [Recovered/Resolved]
  - Myopathy [Recovered/Resolved]
